FAERS Safety Report 25179187 (Version 2)
Quarter: 2025Q4

REPORT INFORMATION
  Report Type: Spontaneous
  Country: US (occurrence: US)
  Receive Date: 20250409
  Receipt Date: 20251015
  Transmission Date: 20260118
  Serious: No
  Sender: PFIZER
  Company Number: US-PFIZER INC-PV202500041551

PATIENT
  Age: 31 Year
  Sex: Female

DRUGS (2)
  1. SOLU-MEDROL [Suspect]
     Active Substance: METHYLPREDNISOLONE SODIUM SUCCINATE
     Indication: Premedication
     Dosage: (INFUSION)
     Route: 042
     Dates: start: 20250314
  2. OCREVUS [Concomitant]
     Active Substance: OCRELIZUMAB
     Dosage: UNK, INFUSION
     Route: 042
     Dates: start: 20250314

REACTIONS (4)
  - Vomiting [Unknown]
  - Throat irritation [Unknown]
  - Pharyngeal swelling [Unknown]
  - Poor venous access [Unknown]

NARRATIVE: CASE EVENT DATE: 20250314
